FAERS Safety Report 11666218 (Version 1)
Quarter: 2015Q4

REPORT INFORMATION
  Report Type: Spontaneous
  Country: US (occurrence: US)
  Receive Date: 20151027
  Receipt Date: 20151027
  Transmission Date: 20160304
  Serious: No
  Sender: FDA-Public Use
  Company Number: US-ELI_LILLY_AND_COMPANY-US201001004685

PATIENT
  Sex: Female

DRUGS (1)
  1. FORTEO [Suspect]
     Active Substance: TERIPARATIDE
     Dates: start: 20091127

REACTIONS (9)
  - Pain [Unknown]
  - Arthralgia [Unknown]
  - Pruritus [Unknown]
  - Injection site reaction [Unknown]
  - Urticaria [Unknown]
  - Pain in extremity [Unknown]
  - Rash [Unknown]
  - Hypersensitivity [Unknown]
  - Bone disorder [Unknown]

NARRATIVE: CASE EVENT DATE: 20091127
